FAERS Safety Report 11930555 (Version 3)
Quarter: 2016Q3

REPORT INFORMATION
  Report Type: Spontaneous
  Country: GB (occurrence: GB)
  Receive Date: 20160120
  Receipt Date: 20160727
  Transmission Date: 20161109
  Serious: Yes (Hospitalization, Other)
  Sender: FDA-Public Use
  Company Number: GB-BRISTOL-MYERS SQUIBB COMPANY-BMS-2016-000375

PATIENT
  Age: 52 Year
  Sex: Female

DRUGS (1)
  1. METFORMIN HYDROCHLORIDE. [Suspect]
     Active Substance: METFORMIN HYDROCHLORIDE
     Indication: PRODUCT USED FOR UNKNOWN INDICATION
     Route: 065

REACTIONS (5)
  - Acute myocardial infarction [Recovered/Resolved]
  - Blindness transient [Recovered/Resolved]
  - Acute kidney injury [Unknown]
  - Lactic acidosis [Recovered/Resolved]
  - Cerebral disorder [Unknown]
